FAERS Safety Report 16674868 (Version 2)
Quarter: 2019Q4

REPORT INFORMATION
  Report Type: Spontaneous
  Country: US (occurrence: US)
  Receive Date: 20190806
  Receipt Date: 20191108
  Transmission Date: 20200122
  Serious: Yes (Other)
  Sender: FDA-Public Use
  Company Number: US-SA-2019SA206208

PATIENT
  Age: 47 Year
  Sex: Female
  Weight: 64 kg

DRUGS (3)
  1. TAXOTERE [Suspect]
     Active Substance: DOCETAXEL
     Indication: BREAST CANCER FEMALE
     Dosage: 147 MG, Q3W
     Route: 042
     Dates: start: 20030513, end: 20030513
  2. TAXOTERE [Suspect]
     Active Substance: DOCETAXEL
     Dosage: 147 MG, Q3W
     Route: 042
     Dates: start: 20030623, end: 20030623
  3. CYTOXAN [Concomitant]
     Active Substance: CYCLOPHOSPHAMIDE
     Indication: BREAST CANCER FEMALE

REACTIONS (6)
  - Pain [Unknown]
  - Psychological trauma [Unknown]
  - Emotional distress [Unknown]
  - Alopecia [Recovering/Resolving]
  - Anxiety [Unknown]
  - Impaired quality of life [Unknown]

NARRATIVE: CASE EVENT DATE: 2003
